FAERS Safety Report 8927942 (Version 1)
Quarter: 2012Q4

REPORT INFORMATION
  Report Type: Spontaneous
  Country: US (occurrence: None)
  Receive Date: 20121126
  Receipt Date: 20121126
  Transmission Date: 20130627
  Serious: Yes (Hospitalization, Other)
  Sender: FDA-Public Use
  Company Number: None

PATIENT
  Age: 58 Year
  Sex: Male

DRUGS (1)
  1. CRESTOR [Suspect]
     Indication: HYPERLIPIDEMIA
     Dosage: 20 mg, 1/2 tab daily - po
     Route: 048
     Dates: start: 20120201, end: 20121022

REACTIONS (2)
  - Tendon rupture [None]
  - Blood creatine phosphokinase increased [None]
